FAERS Safety Report 19998648 (Version 3)
Quarter: 2021Q4

REPORT INFORMATION
  Report Type: Spontaneous
  Country: US (occurrence: US)
  Receive Date: 20211026
  Receipt Date: 20211217
  Transmission Date: 20220303
  Serious: Yes (Other)
  Sender: FDA-Public Use
  Company Number: US-GLAXOSMITHKLINE-US2021217768

PATIENT
  Age: 84 Year
  Sex: Female
  Weight: 71 kg

DRUGS (26)
  1. ZEJULA [Suspect]
     Active Substance: NIRAPARIB
     Indication: Fallopian tube cancer
     Dosage: 200 MG, QD
     Route: 048
     Dates: start: 20210530
  2. ZEJULA [Suspect]
     Active Substance: NIRAPARIB
     Dosage: 200 MG, QD
     Route: 048
     Dates: start: 20210610
  3. ASPIRIN [Suspect]
     Active Substance: ASPIRIN
     Indication: Product used for unknown indication
     Dosage: 81 MG, QD
     Route: 048
  4. ELIQUIS [Suspect]
     Active Substance: APIXABAN
     Indication: Thrombosis
     Dosage: 5 MG
     Dates: start: 20210930
  5. ELIQUIS [Suspect]
     Active Substance: APIXABAN
     Indication: Adenocarcinoma
     Dosage: 1 DF, BID
     Route: 048
  6. ELIQUIS [Suspect]
     Active Substance: APIXABAN
     Indication: Thyroid mass
  7. ELIQUIS [Suspect]
     Active Substance: APIXABAN
     Indication: Gastrointestinal wall thickening
  8. ELIQUIS [Suspect]
     Active Substance: APIXABAN
     Indication: Anaemia
  9. COENZYME Q10 [Suspect]
     Active Substance: DIETARY SUPPLEMENT\UBIDECARENONE
     Indication: Product used for unknown indication
     Dosage: 100 MG, NIGHTLY, AS NEEDED
     Route: 048
  10. TIAZAC [Suspect]
     Active Substance: DILTIAZEM HYDROCHLORIDE
     Indication: Product used for unknown indication
     Dosage: 1 DF, NIGHTLY
     Route: 048
     Dates: start: 20210322
  11. FLOVENT HFA [Suspect]
     Active Substance: FLUTICASONE PROPIONATE
     Indication: Product used for unknown indication
     Dosage: 2 PUFF(S), BID
     Route: 055
     Dates: start: 20210322
  12. VOLTAREN [Suspect]
     Active Substance: DICLOFENAC SODIUM
     Indication: Pain
     Dosage: UNK, QID
     Route: 061
     Dates: start: 20210728
  13. NEURONTIN [Suspect]
     Active Substance: GABAPENTIN
     Indication: Pain
     Dosage: 1 DF, QD, 100 MG AS NEEDED
     Route: 048
     Dates: start: 20210929
  14. NEURONTIN [Suspect]
     Active Substance: GABAPENTIN
     Dosage: 1 DF, BID, 300 MG
     Route: 048
     Dates: start: 20210929
  15. GLUCOTROL [Suspect]
     Active Substance: GLIPIZIDE
     Indication: Product used for unknown indication
     Dosage: 1 DF, BID
     Route: 048
     Dates: start: 20210322
  16. GLUCOTROL [Suspect]
     Active Substance: GLIPIZIDE
     Dosage: 5 MG, BID
     Route: 048
     Dates: start: 20210322
  17. CHONDROITIN SULFATE (BOVINE)\GLUCOSAMINE SULFATE [Suspect]
     Active Substance: CHONDROITIN SULFATE (BOVINE)\GLUCOSAMINE SULFATE
     Indication: Product used for unknown indication
     Dosage: 1 DF, NIGHTLY
     Route: 048
  18. NOVOLOG [Suspect]
     Active Substance: INSULIN ASPART
     Indication: Product used for unknown indication
     Dosage: UNK, QID, INJECT 5-7 UNITS UNDER THE SKIN (BEFORE MEALS AND NIGHTLY)
     Route: 058
     Dates: start: 20210322
  19. LANTUS SOLOSTAR [Suspect]
     Active Substance: INSULIN GLARGINE
     Indication: Product used for unknown indication
     Dosage: 0.2 ML, UNK (100 UNIT/ML), NIGHT
     Route: 058
     Dates: start: 20210322
  20. COZAAR [Suspect]
     Active Substance: LOSARTAN POTASSIUM
     Indication: Product used for unknown indication
     Dosage: 1 DF, QD
     Route: 048
     Dates: start: 20210322
  21. ZOFRAN [Suspect]
     Active Substance: ONDANSETRON HYDROCHLORIDE
     Indication: Nausea
     Dosage: 8 MG, TID
     Dates: start: 20201117
  22. SODIUM FLUORIDE [Suspect]
     Active Substance: SODIUM FLUORIDE
     Indication: Product used for unknown indication
     Dosage: UNK, BID
     Dates: start: 20210708
  23. BETAPACE [Suspect]
     Active Substance: SOTALOL HYDROCHLORIDE
     Indication: Product used for unknown indication
     Dosage: 1 DF, BID
     Route: 048
  24. DOCUSATE\SENNOSIDES [Suspect]
     Active Substance: DOCUSATE\SENNOSIDES
     Indication: Product used for unknown indication
     Dosage: 1 DF, QD
     Route: 048
     Dates: start: 20210902
  25. GLIPIZIDE [Suspect]
     Active Substance: GLIPIZIDE
     Indication: Product used for unknown indication
     Dosage: 1 DF, BID
     Route: 048
     Dates: start: 20210322
  26. SITAGLIPTIN [Suspect]
     Active Substance: SITAGLIPTIN
     Indication: Product used for unknown indication
     Dosage: 50 MG, QD
     Route: 048

REACTIONS (6)
  - Thrombosis [Recovering/Resolving]
  - Ovarian vein thrombosis [Unknown]
  - Diverticulitis [Unknown]
  - Blood pressure increased [Unknown]
  - Blood glucose increased [Unknown]
  - Epistaxis [Unknown]

NARRATIVE: CASE EVENT DATE: 20210920
